FAERS Safety Report 20355900 (Version 3)
Quarter: 2022Q1

REPORT INFORMATION
  Report Type: Spontaneous
  Country: US (occurrence: US)
  Receive Date: 20220120
  Receipt Date: 20220131
  Transmission Date: 20220424
  Serious: Yes (Death, Hospitalization, Other)
  Sender: FDA-Public Use
  Company Number: US-NOVARTISPH-NVSC2022US011654

PATIENT
  Age: 73 Year
  Sex: Female
  Weight: 78.8 kg

DRUGS (2)
  1. LETROZOLE [Suspect]
     Active Substance: LETROZOLE
     Indication: Osteitis deformans
     Dosage: 2.5 MG
     Route: 065
     Dates: start: 20211216, end: 20220104
  2. IBRANCE [Suspect]
     Active Substance: PALBOCICLIB
     Indication: Osteitis deformans
     Dosage: 125 MG
     Route: 048
     Dates: start: 20211216, end: 20220104

REACTIONS (8)
  - Escherichia sepsis [Fatal]
  - Infection [Fatal]
  - Neutropenia [Fatal]
  - Febrile neutropenia [Fatal]
  - Fatigue [Fatal]
  - Dyspnoea [Fatal]
  - Renal impairment [Unknown]
  - Full blood count abnormal [Unknown]

NARRATIVE: CASE EVENT DATE: 20220104
